FAERS Safety Report 8235682-X (Version None)
Quarter: 2012Q1

REPORT INFORMATION
  Report Type: 
  Country: None (occurrence: None)
  Receive Date: 20120326
  Receipt Date: 20120314
  Transmission Date: 20120608
  Serious: Yes (Other)
  Sender: FDA-Public Use
  Company Number: PHHY2012GB017122

PATIENT
  Age: 75 Year
  Sex: Male

DRUGS (10)
  1. RAMIPRIL [Suspect]
  2. WARFARIN SODIUM [Suspect]
  3. FUROSEMIDE [Suspect]
  4. ALBUTEROL [Suspect]
  5. VERAPAMIL [Suspect]
  6. ATORVASTATIN [Suspect]
  7. CYSTEINE HYDROCHLORIDE [Suspect]
  8. METFORMIN HCL [Suspect]
  9. PREDNISOLONE [Suspect]
  10. FORMOTEROL FUMARATE [Suspect]

REACTIONS (1)
  - HALLUCINATION [None]
